FAERS Safety Report 5372483-4 (Version None)
Quarter: 2007Q2

REPORT INFORMATION
  Report Type: 
  Country: None (occurrence: None)
  Receive Date: 20070620
  Receipt Date: 20070507
  Transmission Date: 20071010
  Serious: No
  Sender: FDA-Public Use
  Company Number: 2007RL000198

PATIENT
  Age: 64 Year
  Sex: Female
  Weight: 68.0396 kg

DRUGS (5)
  1. OMACOR [Suspect]
     Indication: BLOOD TRIGLYCERIDES INCREASED
     Dosage: 4 GM; QD; PO 1 GM; QD; PO; 1 GM; QD; PO
     Route: 048
     Dates: start: 20060101, end: 20060101
  2. OMACOR [Suspect]
     Indication: BLOOD TRIGLYCERIDES INCREASED
     Dosage: 4 GM; QD; PO 1 GM; QD; PO; 1 GM; QD; PO
     Route: 048
     Dates: start: 20060101, end: 20070505
  3. OMACOR [Suspect]
     Indication: BLOOD TRIGLYCERIDES INCREASED
     Dosage: 4 GM; QD; PO 1 GM; QD; PO; 1 GM; QD; PO
     Route: 048
     Dates: start: 20070507
  4. CALCIUM CHLORIDE [Concomitant]
  5. MULTI-VITAMIN [Concomitant]

REACTIONS (4)
  - ERUCTATION [None]
  - FLATULENCE [None]
  - INTENTIONAL DRUG MISUSE [None]
  - NAUSEA [None]
